FAERS Safety Report 13748549 (Version 1)
Quarter: 2017Q3

REPORT INFORMATION
  Report Type: Spontaneous
  Country: US (occurrence: US)
  Receive Date: 20170712
  Receipt Date: 20170712
  Transmission Date: 20171127
  Serious: Yes (Other)
  Sender: FDA-Public Use
  Company Number: None

PATIENT
  Age: 1 Year
  Sex: Male
  Weight: 9 kg

DRUGS (2)
  1. KETAMINE INJECTION 10 MG/ML [Suspect]
     Active Substance: KETAMINE HYDROCHLORIDE
     Indication: SEDATION
     Route: 042
     Dates: start: 20170711
  2. KETAMINE INJECTION 10 MG/ML [Suspect]
     Active Substance: KETAMINE HYDROCHLORIDE
     Indication: PAIN
     Route: 042
     Dates: start: 20170711

REACTIONS (1)
  - Drug ineffective [None]

NARRATIVE: CASE EVENT DATE: 20170711
